FAERS Safety Report 11122311 (Version 1)
Quarter: 2015Q2

REPORT INFORMATION
  Report Type: Spontaneous
  Country: US (occurrence: US)
  Receive Date: 20150519
  Receipt Date: 20150519
  Transmission Date: 20150821
  Serious: Yes (Other)
  Sender: FDA-Public Use
  Company Number: US-JNJFOC-20150505115

PATIENT
  Sex: Male

DRUGS (1)
  1. DURAGESIC [Suspect]
     Active Substance: FENTANYL
     Indication: PRODUCT USED FOR UNKNOWN INDICATION
     Route: 062

REACTIONS (7)
  - Hyperhidrosis [Unknown]
  - Incorrect route of drug administration [Unknown]
  - Product quality issue [Unknown]
  - Musculoskeletal disorder [Unknown]
  - Adverse event [Unknown]
  - Wrong technique in drug usage process [Unknown]
  - Drug ineffective [Unknown]
